FAERS Safety Report 7277262-9 (Version None)
Quarter: 2011Q1

REPORT INFORMATION
  Report Type: 
  Country: None (occurrence: None)
  Receive Date: 20110202
  Receipt Date: 20110202
  Transmission Date: 20110831
  Serious: Yes (Other)
  Sender: FDA-Public Use
  Company Number: None

PATIENT
  Age: 27 Year
  Sex: Female
  Weight: 99.7913 kg

DRUGS (3)
  1. PRISTIQ [Suspect]
     Indication: MAJOR DEPRESSION
     Dosage: 50MG ONCE DAILY PO
     Route: 048
     Dates: start: 20110128, end: 20110131
  2. PRISTIQ [Suspect]
     Indication: ANXIETY
     Dosage: 50MG ONCE DAILY PO
     Route: 048
     Dates: start: 20110128, end: 20110131
  3. BUSPAR [Concomitant]

REACTIONS (1)
  - DRUG HYPERSENSITIVITY [None]
